FAERS Safety Report 16731026 (Version 7)
Quarter: 2019Q4

REPORT INFORMATION
  Report Type: Spontaneous
  Country: US (occurrence: US)
  Receive Date: 20190822
  Receipt Date: 20191210
  Transmission Date: 20200122
  Serious: No
  Sender: FDA-Public Use
  Company Number: US-PFIZER INC-2019361083

PATIENT
  Age: 71 Year
  Sex: Male
  Weight: 88 kg

DRUGS (2)
  1. PREGABALIN. [Suspect]
     Active Substance: PREGABALIN
     Indication: FIBROMYALGIA
     Dosage: 75 MG, 3X/DAY
     Route: 048
     Dates: start: 20190808, end: 2019
  2. PREGABALIN. [Suspect]
     Active Substance: PREGABALIN
     Indication: PAIN
     Dosage: 75 MG, 1X/DAY (75 MG OR THREE 25 MG)
     Dates: start: 2019

REACTIONS (10)
  - Dizziness [Unknown]
  - Loss of personal independence in daily activities [Unknown]
  - Product prescribing error [Unknown]
  - Headache [Unknown]
  - Blood pressure fluctuation [Unknown]
  - Drug ineffective [Unknown]
  - Intentional product use issue [Unknown]
  - Nausea [Unknown]
  - Malaise [Unknown]
  - Back pain [Unknown]

NARRATIVE: CASE EVENT DATE: 2019
